FAERS Safety Report 24880908 (Version 1)
Quarter: 2025Q1

REPORT INFORMATION
  Report Type: Spontaneous
  Country: CN (occurrence: CN)
  Receive Date: 20250124
  Receipt Date: 20250124
  Transmission Date: 20250409
  Serious: Yes (Other)
  Sender: AMGEN
  Company Number: CN-AMGEN-CHNSP2025012525

PATIENT
  Age: 54 Year
  Sex: Female
  Weight: 56 kg

DRUGS (2)
  1. XGEVA [Suspect]
     Active Substance: DENOSUMAB
     Indication: Spinal osteoarthritis
     Dosage: 120 MILLIGRAM, QD
     Route: 058
     Dates: start: 20241216, end: 20241216
  2. PACLITAXEL [Suspect]
     Active Substance: PACLITAXEL
     Indication: Spinal osteoarthritis
     Dosage: 155 MILLIGRAM (DRIP)
     Route: 040
     Dates: start: 20241214, end: 20241214

REACTIONS (2)
  - White blood cell count decreased [Recovering/Resolving]
  - Neutrophil count decreased [Recovering/Resolving]

NARRATIVE: CASE EVENT DATE: 20241222
